FAERS Safety Report 9339132 (Version 1)
Quarter: 2013Q2

REPORT INFORMATION
  Report Type: Spontaneous
  Country: US (occurrence: None)
  Receive Date: 20130603
  Receipt Date: 20130603
  Transmission Date: 20140414
  Serious: Yes (Hospitalization, Other)
  Sender: FDA-Public Use
  Company Number: 2013PROUSA02852

PATIENT
  Age: 80 Year
  Sex: Male
  Weight: 79.1 kg

DRUGS (7)
  1. PROVENGE (SIPULEUCEL-T) SUSPENSION, 250ML [Suspect]
     Indication: PROSTATE CANCER METASTATIC
     Dosage: 250ML, SINGLE, INTRAVENOUS
     Route: 042
     Dates: start: 20120120, end: 20120120
  2. DENOSUMAB (DENOSUMAB) [Concomitant]
  3. CALCIUM (CALCIUM) [Concomitant]
  4. LUPRON (LEUPRORELIN) [Concomitant]
  5. SIMVASTATIN (SIMVASTATIN) [Concomitant]
  6. PRILOSEC [Concomitant]
  7. TAMSULOSIN HYDROCHLORIDE (TAMSULOSIN HYDROCHLORIDE) [Concomitant]

REACTIONS (10)
  - Pulmonary embolism [None]
  - Device related infection [None]
  - Vomiting [None]
  - Fatigue [None]
  - Asthenia [None]
  - Nausea [None]
  - Pulmonary mass [None]
  - Hiatus hernia [None]
  - Metastases to bone [None]
  - Prostate cancer [None]
